FAERS Safety Report 4469423-9 (Version None)
Quarter: 2004Q4

REPORT INFORMATION
  Report Type: 
  Country: None (occurrence: None)
  Receive Date: 20041008
  Receipt Date: 20040719
  Transmission Date: 20050328
  Serious: No
  Sender: FDA-Public Use
  Company Number: US-BRISTOL-MYERS SQUIBB COMPANY-12662912

PATIENT
  Age: 68 Year
  Sex: Male
  Weight: 115 kg

DRUGS (6)
  1. AVAPRO [Suspect]
     Indication: HYPERTENSION
     Route: 048
     Dates: start: 20040401, end: 20040501
  2. ALLOPURINOL [Concomitant]
     Indication: GOUT
     Dosage: DOSAGE FORM = TABLET
     Route: 048
  3. INDOMETHACIN [Concomitant]
     Indication: GOUT
     Dosage: DOSAGE FORM = CAPSULE
     Route: 048
  4. FRUSEMIDE [Concomitant]
     Indication: DIURETIC EFFECT
     Dosage: DOSAGE FORM = TABLET
     Route: 048
  5. HYDROCHLOROTHIAZIDE W/TRIAMTERENE [Concomitant]
     Dosage: DOSAGE FORM = CAPSULE
     Route: 048
  6. TRAZODONE HCL [Concomitant]
     Dosage: DOSAGE FORM = TABLET
     Route: 048

REACTIONS (3)
  - DEPRESSION [None]
  - DRUG INEFFECTIVE [None]
  - HYPERTENSION [None]
